FAERS Safety Report 13299851 (Version 10)
Quarter: 2020Q1

REPORT INFORMATION
  Report Type: Spontaneous
  Country: US (occurrence: US)
  Receive Date: 20170306
  Receipt Date: 20200205
  Transmission Date: 20200409
  Serious: Yes (Hospitalization, Other)
  Sender: FDA-Public Use
  Company Number: US-ACTELION-A-NJ2016-147484

PATIENT
  Age: 73 Year
  Sex: Female
  Weight: 77.1 kg

DRUGS (5)
  1. VELETRI [Suspect]
     Active Substance: EPOPROSTENOL
     Dosage: UNK
     Route: 042
  2. TRACLEER [Concomitant]
     Active Substance: BOSENTAN
     Indication: PULMONARY ARTERIAL HYPERTENSION
  3. REVATIO [Concomitant]
     Active Substance: SILDENAFIL CITRATE
  4. VELETRI [Suspect]
     Active Substance: EPOPROSTENOL
     Indication: PULMONARY ARTERIAL HYPERTENSION
     Dosage: 33 NG/KG, PER MIN
     Route: 042
     Dates: start: 20161130
  5. VELETRI [Suspect]
     Active Substance: EPOPROSTENOL
     Dosage: 33 NG/KG, PER MIN
     Route: 042

REACTIONS (15)
  - Dizziness [Unknown]
  - Asthenia [Unknown]
  - Infusion site infection [Recovering/Resolving]
  - Device dislocation [Unknown]
  - Fall [Unknown]
  - Catheter management [Unknown]
  - Pain in jaw [Unknown]
  - Dyspnoea [Not Recovered/Not Resolved]
  - Upper limb fracture [Unknown]
  - Epistaxis [Unknown]
  - Flushing [Unknown]
  - Vomiting [Recovering/Resolving]
  - Nausea [Unknown]
  - Headache [Unknown]
  - Diarrhoea [Unknown]

NARRATIVE: CASE EVENT DATE: 20181015
